FAERS Safety Report 20579150 (Version 2)
Quarter: 2022Q3

REPORT INFORMATION
  Report Type: Spontaneous
  Country: SK (occurrence: SK)
  Receive Date: 20220310
  Receipt Date: 20220926
  Transmission Date: 20221026
  Serious: Yes (Death, Other)
  Sender: FDA-Public Use
  Company Number: SK-BAYER-2022A031574

PATIENT
  Age: 62 Year
  Sex: Male

DRUGS (3)
  1. XOFIGO [Suspect]
     Active Substance: RADIUM RA-223 DICHLORIDE
     Dosage: UNK
     Dates: start: 20211001, end: 20211001
  2. XOFIGO [Suspect]
     Active Substance: RADIUM RA-223 DICHLORIDE
     Dosage: UNK
     Dates: start: 20211029, end: 20211029
  3. XOFIGO [Suspect]
     Active Substance: RADIUM RA-223 DICHLORIDE
     Dosage: UNK
     Dates: start: 20211124, end: 20211124

REACTIONS (4)
  - Death [Fatal]
  - Malignant neoplasm progression [None]
  - General physical health deterioration [None]
  - Anaemia [None]

NARRATIVE: CASE EVENT DATE: 20211112
